FAERS Safety Report 5246858-8 (Version None)
Quarter: 2007Q1

REPORT INFORMATION
  Report Type: 
  Country: None (occurrence: None)
  Receive Date: 20070226
  Receipt Date: 20070214
  Transmission Date: 20070707
  Serious: Yes (Other)
  Sender: FDA-Public Use
  Company Number: US-PFIZER INC-2007013323

PATIENT
  Sex: Female
  Weight: 77.1 kg

DRUGS (13)
  1. CHANTIX [Suspect]
     Indication: EX-SMOKER
  2. LIPITOR [Concomitant]
  3. ELAVIL [Concomitant]
  4. PAXIL [Concomitant]
  5. SPIRONOLACTONE [Concomitant]
  6. ATACAND [Concomitant]
  7. TOPROL-XL [Concomitant]
  8. LEVAQUIN [Concomitant]
  9. PREDNISONE [Concomitant]
  10. CODEINE [Concomitant]
     Indication: COUGH
  11. ACIPHEX [Concomitant]
  12. ALBUTEROL [Concomitant]
  13. ADVAIR DISKUS 100/50 [Concomitant]

REACTIONS (2)
  - GLOSSODYNIA [None]
  - MOUTH ULCERATION [None]
